FAERS Safety Report 15348539 (Version 1)
Quarter: 2018Q3

REPORT INFORMATION
  Report Type: Spontaneous
  Country: US (occurrence: US)
  Receive Date: 20180904
  Receipt Date: 20180904
  Transmission Date: 20181010
  Serious: No
  Sender: FDA-Public Use
  Company Number: US-OREXO US, INC.-ORE201710-000104

PATIENT
  Weight: 43.13 kg

DRUGS (1)
  1. ZUBSOLV [Suspect]
     Active Substance: BUPRENORPHINE HYDROCHLORIDE\NALOXONE HYDROCHLORIDE
     Indication: DRUG DEPENDENCE
     Dosage: 1.4 MG

REACTIONS (3)
  - Overdose [Recovering/Resolving]
  - Tremor [Recovering/Resolving]
  - Confusional state [Recovering/Resolving]
